FAERS Safety Report 8535509-2 (Version None)
Quarter: 2012Q3

REPORT INFORMATION
  Report Type: 
  Country: None (occurrence: None)
  Receive Date: 20120725
  Receipt Date: 20120716
  Transmission Date: 20120928
  Serious: Yes (Hospitalization)
  Sender: FDA-Public Use
  Company Number: IL-009507513-1207ISR006281

PATIENT

DRUGS (9)
  1. ESTO (ESCITALOPRAM OXALATE) [Concomitant]
     Dosage: 10 MG, BID
     Dates: start: 20120701
  2. LORIVAN [Concomitant]
     Dosage: 1 MG, UNK
     Dates: start: 20120501
  3. PEG-INTRON [Concomitant]
     Dosage: 140 MICROGRAM, UNK
     Dates: start: 20120615
  4. PEG-INTRON [Concomitant]
     Indication: HEPATITIS C
     Dosage: UNK
     Dates: start: 20120301
  5. ESTO (ESCITALOPRAM OXALATE) [Concomitant]
     Dosage: 10 MG, QID
     Dates: start: 20120501
  6. COUMADIN [Concomitant]
     Dosage: UNK
     Dates: start: 19910101
  7. VICTRELIS [Suspect]
     Indication: HEPATITIS C
     Dosage: UNK
     Route: 048
     Dates: start: 20120401
  8. REBETOL [Concomitant]
     Indication: HEPATITIS C
     Dosage: UNK MG, UNK
     Route: 048
     Dates: start: 20120301
  9. REBETOL [Concomitant]
     Dosage: 1000 MG, UNK
     Dates: start: 20120615

REACTIONS (11)
  - EYE PAIN [None]
  - DIZZINESS [None]
  - HEADACHE [None]
  - DEPRESSION SUICIDAL [None]
  - PERIPHERAL COLDNESS [None]
  - DRY MOUTH [None]
  - NAUSEA [None]
  - NEUTROPENIA [None]
  - AMNESIA [None]
  - HAEMORRHOIDS [None]
  - AGGRESSION [None]
